FAERS Safety Report 5738058-X (Version None)
Quarter: 2008Q2

REPORT INFORMATION
  Report Type: 
  Country: None (occurrence: None)
  Receive Date: 20080509
  Receipt Date: 20080505
  Transmission Date: 20081010
  Serious: Yes (Disabling)
  Sender: FDA-Public Use
  Company Number: 027417

PATIENT
  Age: 23 Year
  Sex: Female

DRUGS (1)
  1. AVIANE-21 [Suspect]
     Indication: CONTRACEPTION
     Dosage: 1 TABLET, QD, ORAL
     Route: 048
     Dates: start: 20080410, end: 20080414

REACTIONS (1)
  - DIARRHOEA [None]
